FAERS Safety Report 9050610 (Version 1)
Quarter: 2013Q1

REPORT INFORMATION
  Report Type: Spontaneous
  Country: NO (occurrence: NO)
  Receive Date: 20130205
  Receipt Date: 20130205
  Transmission Date: 20140127
  Serious: Yes (Death)
  Sender: FDA-Public Use
  Company Number: NO-NOVOPROD-370010

PATIENT
  Age: 13 Year
  Sex: Female
  Weight: 68 kg

DRUGS (2)
  1. NOVORAPID [Suspect]
     Indication: TYPE 1 DIABETES MELLITUS
     Dosage: 6IU BREAKFAST, 6IU LUNCH, 6IU BETWEEN MEAL, 7-8IU DINNER, 5-6IU EVENING
     Dates: start: 20081107
  2. INSULATARD PENFILL [Concomitant]
     Indication: TYPE 1 DIABETES MELLITUS
     Dosage: 20IU BREAKFAST AND 21IU EVENING
     Dates: start: 20081107

REACTIONS (4)
  - Death [Fatal]
  - Wrong technique in drug usage process [Fatal]
  - Hypoglycaemia [Fatal]
  - Overdose [Fatal]
